FAERS Safety Report 10428660 (Version 1)
Quarter: 2014Q3

REPORT INFORMATION
  Report Type: Spontaneous
  Country: GB (occurrence: None)
  Receive Date: 20140829
  Receipt Date: 20140829
  Transmission Date: 20150326
  Serious: Yes (Other)
  Sender: FDA-Public Use
  Company Number: 2014AP004107

PATIENT
  Age: 91 Year
  Sex: Female

DRUGS (6)
  1. PERINDOPRIL ERBUMINE. [Suspect]
     Active Substance: PERINDOPRIL ERBUMINE
     Indication: LEFT VENTRICULAR FAILURE
     Route: 048
     Dates: end: 20120409
  2. SPIRONOLACTONE (SPIRONOLACTONE) [Suspect]
     Active Substance: SPIRONOLACTONE
     Indication: LEFT VENTRICULAR FAILURE
     Route: 048
     Dates: end: 20120409
  3. HALOPERIDOL. [Concomitant]
     Active Substance: HALOPERIDOL
  4. VITAMIN B12 [Concomitant]
     Active Substance: CYANOCOBALAMIN
  5. ASASANTIN [Concomitant]
     Active Substance: ASPIRIN\DIPYRIDAMOLE
  6. CITALOPRAM [Concomitant]
     Active Substance: CITALOPRAM HYDROBROMIDE

REACTIONS (5)
  - Renal failure acute [None]
  - Medication error [None]
  - Dizziness [None]
  - Asthenia [None]
  - Confusional state [None]

NARRATIVE: CASE EVENT DATE: 20120408
